FAERS Safety Report 9652214 (Version 4)
Quarter: 2013Q4

REPORT INFORMATION
  Report Type: Spontaneous
  Country: JP (occurrence: JP)
  Receive Date: 20131029
  Receipt Date: 20131113
  Transmission Date: 20140711
  Serious: Yes (Hospitalization, Other)
  Sender: FDA-Public Use
  Company Number: JP-009507513-1310JPN011000

PATIENT
  Age: 54 Year
  Sex: Male

DRUGS (3)
  1. JANUVIA TABLETS 50MG [Suspect]
     Indication: DIABETES MELLITUS
     Dosage: 50 MG, QD
     Route: 048
     Dates: end: 201302
  2. EQUA [Suspect]
     Dosage: UNKNOWN
     Route: 048
     Dates: start: 201303
  3. EUGLUCON [Suspect]
     Dosage: 2.5 MG DIVIDED DOSE FREQUENCY UNKNOWN

REACTIONS (2)
  - Retinal detachment [Unknown]
  - Surgery [Unknown]
